FAERS Safety Report 18671428 (Version 6)
Quarter: 2022Q1

REPORT INFORMATION
  Report Type: Report from Study
  Country: US (occurrence: US)
  Receive Date: 20201228
  Receipt Date: 20220221
  Transmission Date: 20220424
  Serious: Yes (Other)
  Sender: FDA-Public Use
  Company Number: US-TAKEDA-US202008057

PATIENT
  Age: 55 Year
  Sex: Female

DRUGS (1)
  1. HUMAN IMMUNOGLOBULIN G [Suspect]
     Active Substance: HUMAN IMMUNOGLOBULIN G
     Indication: Selective IgG subclass deficiency
     Dosage: UNK
     Route: 065

REACTIONS (12)
  - Heteronymous diplopia [Unknown]
  - Spinal compression fracture [Unknown]
  - Hernia [Unknown]
  - Pneumonia [Unknown]
  - Cellulitis [Unknown]
  - Heart rate increased [Unknown]
  - Dizziness [Unknown]
  - Weight decreased [Unknown]
  - Osteoarthritis [Unknown]
  - Suspected COVID-19 [Unknown]
  - Rash [Unknown]
  - Contusion [Recovering/Resolving]

NARRATIVE: CASE EVENT DATE: 20210602
